FAERS Safety Report 5506325-0 (Version None)
Quarter: 2007Q4

REPORT INFORMATION
  Report Type: 
  Country: None (occurrence: None)
  Receive Date: 20071105
  Receipt Date: 20071024
  Transmission Date: 20080405
  Serious: Yes (Hospitalization)
  Sender: FDA-Public Use
  Company Number: DK-PURDUE-GBR_2007_0003414

PATIENT
  Age: 84 Year
  Sex: Female

DRUGS (3)
  1. OXYCONTIN [Suspect]
     Indication: DRUG USE FOR UNKNOWN INDICATION
     Dosage: 10 MG, TID
     Route: 048
     Dates: start: 20041227
  2. OXYCONTIN [Suspect]
     Dosage: 20 MG, TID
     Route: 048
     Dates: start: 20041227
  3. LYRICA [Suspect]
     Indication: NEURALGIA
     Dosage: 2X75 MG, UNK
     Route: 048
     Dates: start: 20071003, end: 20071010

REACTIONS (5)
  - CONFUSIONAL STATE [None]
  - DIPLOPIA [None]
  - DYSARTHRIA [None]
  - FATIGUE [None]
  - MOVEMENT DISORDER [None]
